FAERS Safety Report 4800620-6 (Version None)
Quarter: 2005Q4

REPORT INFORMATION
  Report Type: 
  Country: None (occurrence: None)
  Receive Date: 20051017
  Receipt Date: 20051004
  Transmission Date: 20060501
  Serious: Yes (Hospitalization)
  Sender: FDA-Public Use
  Company Number: US-MERCK-0510USA03702

PATIENT
  Age: 63 Year
  Sex: Female
  Weight: 76 kg

DRUGS (15)
  1. VIOXX [Suspect]
     Indication: NECK PAIN
     Route: 048
     Dates: start: 20030301, end: 20040801
  2. VIOXX [Suspect]
     Indication: SWELLING
     Route: 048
     Dates: start: 20030301, end: 20040801
  3. ASPIRIN [Concomitant]
     Route: 065
  4. AMBIEN [Concomitant]
     Route: 065
  5. LOTREL [Concomitant]
     Route: 065
  6. ALLEGRA [Concomitant]
     Route: 065
  7. PREVACID [Concomitant]
     Route: 065
  8. ALTOCOR [Concomitant]
     Route: 065
  9. SYNTHROID [Concomitant]
     Route: 065
  10. BACLOFEN [Concomitant]
     Route: 065
  11. HUMIBID [Concomitant]
     Route: 065
  12. ADVAIR DISKUS 100/50 [Concomitant]
     Route: 065
  13. ALBUTEROL [Concomitant]
     Route: 065
  14. FLONASE [Concomitant]
     Route: 065
  15. HYDROCODONE HYDROCHLORIDE [Concomitant]
     Route: 065

REACTIONS (10)
  - ACUTE MYOCARDIAL INFARCTION [None]
  - BRADYCARDIA [None]
  - CAROTID ARTERY STENOSIS [None]
  - CHEST PAIN [None]
  - CORONARY ARTERY DISEASE [None]
  - HAEMORRHAGE [None]
  - HYPERCHOLESTEROLAEMIA [None]
  - HYPERTENSION [None]
  - HYPOKINESIA [None]
  - HYPOTENSION [None]
